FAERS Safety Report 9165155 (Version 2)
Quarter: 2013Q2

REPORT INFORMATION
  Report Type: Spontaneous
  Country: JP (occurrence: JP)
  Receive Date: 20130315
  Receipt Date: 20130410
  Transmission Date: 20140414
  Serious: Yes (Hospitalization)
  Sender: FDA-Public Use
  Company Number: JP-VERTEX PHARMACEUTICALS INC.-2013-001081

PATIENT
  Age: 72 Year
  Sex: Female

DRUGS (113)
  1. TELAVIC [Suspect]
     Indication: CHRONIC HEPATITIS C
     Dosage: 1500 MG, QD
     Route: 048
     Dates: start: 20121113, end: 20121127
  2. TELAVIC [Suspect]
     Dosage: 3000 MG, QD
     Route: 048
     Dates: start: 20121128, end: 20121128
  3. TELAVIC [Suspect]
     Dosage: 1500 MG, QD
     Route: 048
     Dates: start: 20121129, end: 20121211
  4. TELAVIC [Suspect]
     Dosage: 1500 MG, QD
     Route: 048
     Dates: start: 20121227, end: 20130101
  5. TELAVIC [Suspect]
     Dosage: 1000 MG, QD
     Route: 048
     Dates: start: 20130102, end: 20130109
  6. TELAVIC [Suspect]
     Dosage: 1500 MG, QD
     Route: 048
     Dates: start: 20130110, end: 20130115
  7. TELAVIC [Suspect]
     Dosage: 1000 MG, QD
     Route: 048
     Dates: start: 20130116, end: 20130123
  8. TELAVIC [Suspect]
     Dosage: 1500 MG, QD
     Route: 048
     Dates: start: 20130124, end: 20130129
  9. TELAVIC [Suspect]
     Dosage: 1000 MG, QD
     Route: 048
     Dates: start: 20130130, end: 20130206
  10. REBETOL [Suspect]
     Indication: CHRONIC HEPATITIS C
     Dosage: 400 MG, QD
     Route: 048
     Dates: start: 20121113, end: 20121127
  11. REBETOL [Suspect]
     Dosage: 800 MG, QD
     Route: 048
     Dates: start: 20121128, end: 20121128
  12. REBETOL [Suspect]
     Dosage: 400 MG, QD
     Route: 048
     Dates: start: 20121129, end: 20121211
  13. REBETOL [Suspect]
     Dosage: 400 MG, QD
     Route: 048
     Dates: start: 20121213, end: 20130213
  14. PEGINTRON [Suspect]
     Indication: CHRONIC HEPATITIS C
     Dosage: 1.5 ?G/KG, QW
     Route: 058
     Dates: start: 20121113, end: 20130207
  15. CEREKINON [Concomitant]
     Dosage: 300 MG, QD
     Route: 048
     Dates: start: 20121113, end: 20121118
  16. CEREKINON [Concomitant]
     Dosage: 600 MG, QD
     Route: 048
     Dates: start: 20121119, end: 20121125
  17. CEREKINON [Concomitant]
     Dosage: 300 MG, QD
     Route: 048
     Dates: start: 20121127, end: 20121211
  18. JUZENTAIHOTO [Concomitant]
     Dosage: 7.5 G, QD
     Route: 048
     Dates: start: 20121113, end: 20121127
  19. JUZENTAIHOTO [Concomitant]
     Dosage: 15 G, QD
     Route: 048
     Dates: start: 20121128, end: 20121128
  20. JUZENTAIHOTO [Concomitant]
     Dosage: 7.5 G, QD
     Route: 048
     Dates: start: 20121129, end: 20121211
  21. JUZENTAIHOTO [Concomitant]
     Dosage: 7.5 G, QD
     Route: 048
     Dates: start: 20121213, end: 20130220
  22. LOXONIN [Concomitant]
     Dosage: 180 MG, QD
     Route: 048
     Dates: start: 20121113, end: 20121127
  23. LOXONIN [Concomitant]
     Dosage: 360 MG, QD
     Route: 048
     Dates: start: 20121128, end: 20121128
  24. LOXONIN [Concomitant]
     Dosage: 180 MG, QD
     Route: 048
     Dates: start: 20121129, end: 20121211
  25. LOXONIN [Concomitant]
     Dosage: 180 MG, QD
     Route: 048
     Dates: start: 20121220, end: 20130213
  26. MUCOSTA [Concomitant]
     Dosage: 300 MG, QD
     Route: 048
     Dates: start: 20121113, end: 20121127
  27. MUCOSTA [Concomitant]
     Dosage: 600 MG, QD
     Route: 048
     Dates: start: 20121128, end: 20121128
  28. MUCOSTA [Concomitant]
     Dosage: 300 MG, QD
     Route: 048
     Dates: start: 20121129, end: 20121211
  29. MUCOSTA [Concomitant]
     Dosage: 600 MG, QD
     Route: 048
     Dates: start: 20121220, end: 20130213
  30. MUCOSTA [Concomitant]
     Dosage: 300 MG, QD
     Route: 048
     Dates: start: 20130214, end: 20130220
  31. TAKEPRON [Concomitant]
     Dosage: 15 MG, QD
     Route: 048
     Dates: start: 20121113, end: 20121127
  32. TAKEPRON [Concomitant]
     Dosage: 30 MG, QD
     Route: 048
     Dates: start: 20121128, end: 20121128
  33. TAKEPRON [Concomitant]
     Dosage: 15 MG, QD
     Route: 048
     Dates: start: 20121129, end: 20121211
  34. TAKEPRON [Concomitant]
     Dosage: 15 MG, QD
     Route: 048
     Dates: start: 20121220, end: 20130220
  35. AMLODIN [Concomitant]
     Dosage: 5 MG, QD
     Route: 048
     Dates: start: 20121113, end: 20121127
  36. AMLODIN [Concomitant]
     Dosage: 10 MG, QD
     Route: 048
     Dates: start: 20121128, end: 20121128
  37. AMLODIN [Concomitant]
     Dosage: 5 MG, QD
     Route: 048
     Dates: start: 20121129, end: 20121211
  38. AMLODIN [Concomitant]
     Dosage: 5 MG, QD
     Route: 048
     Dates: start: 20121213, end: 20130213
  39. URSO [Concomitant]
     Dosage: 600 MG, QD
     Route: 048
     Dates: start: 20121113, end: 20121128
  40. MICARDIS [Concomitant]
     Dosage: 40 MG, QD
     Route: 048
     Dates: start: 20121113, end: 20121127
  41. MICARDIS [Concomitant]
     Dosage: 80 MG, QD
     Route: 048
     Dates: start: 20121128, end: 20121128
  42. MICARDIS [Concomitant]
     Dosage: 40 MG, QD
     Route: 048
     Dates: start: 20121129, end: 20121211
  43. MICARDIS [Concomitant]
     Dosage: 40 MG, QD
     Route: 048
     Dates: start: 20121213, end: 20130213
  44. LOXONIN [Concomitant]
     Dosage: 7 TAPES/PACK
     Route: 061
     Dates: start: 20121116, end: 20121116
  45. NAUZELIN [Concomitant]
     Dosage: 30 MG, QD
     Route: 048
     Dates: start: 20121116, end: 20121121
  46. NAUZELIN [Concomitant]
     Dosage: 30 MG, QD
     Route: 048
     Dates: start: 20121124, end: 20121211
  47. BICARBON [Concomitant]
     Dosage: 500 ML, QD
     Route: 041
     Dates: start: 20121118, end: 20121126
  48. BICARBON [Concomitant]
     Dosage: 500 ML, QD
     Route: 041
     Dates: start: 20130207, end: 20130207
  49. BICARBON [Concomitant]
     Dosage: 500 ML, QD
     Route: 041
     Dates: start: 20130210, end: 20130210
  50. BICARBON [Concomitant]
     Dosage: 500 ML, QD
     Route: 041
     Dates: start: 20130214, end: 20130216
  51. BFLUID [Concomitant]
     Dosage: 500 ML, QD
     Route: 041
     Dates: start: 20121118, end: 20121126
  52. PEMIROC [Concomitant]
     Dosage: 1 TUBE, QD
     Route: 041
     Dates: start: 20121118, end: 20121228
  53. PEMIROC [Concomitant]
     Dosage: 1 TUBE, QD
     Route: 041
     Dates: start: 20130214, end: 20130227
  54. MYSER [Concomitant]
     Dosage: 5 G, QD
     Route: 061
     Dates: start: 20121119, end: 20121119
  55. TSUMURA RIKKUNSHITO EXTRACT GRANULES FOR ETHICAL USE (RIKKUNSHITO) [Concomitant]
     Dosage: 2.5 G, QD
     Route: 048
     Dates: start: 20121120, end: 20121120
  56. GASMOTIN [Concomitant]
     Dosage: 15 MG, QD
     Route: 048
     Dates: start: 20121122, end: 20121122
  57. FEBURIC [Concomitant]
     Dosage: 10 MG, QD
     Route: 048
     Dates: start: 20121128, end: 20121211
  58. FEBURIC [Concomitant]
     Dosage: 10 MG, QD
     Route: 048
     Dates: start: 20121213, end: 20130116
  59. FEBURIC [Concomitant]
     Dosage: 20 MG, QD
     Route: 048
     Dates: start: 20130117, end: 20130130
  60. FEBURIC [Concomitant]
     Dosage: 40 MG, QD
     Route: 048
     Dates: start: 20130131, end: 20130213
  61. FEBURIC [Concomitant]
     Dosage: 10 MG, QD
     Route: 048
     Dates: start: 20130215, end: 20130220
  62. LASIX [Concomitant]
     Dosage: 10 MG, QD
     Route: 048
     Dates: start: 20121203, end: 20121206
  63. LASIX [Concomitant]
     Dosage: 40 MG, QD
     Route: 048
     Dates: start: 20121206, end: 20121212
  64. LASIX [Concomitant]
     Dosage: 10 MG, QD
     Route: 048
     Dates: start: 20130107, end: 20130110
  65. LASIX [Concomitant]
     Dosage: 40 MG, QD
     Route: 048
     Dates: start: 20130110, end: 20130213
  66. LASIX [Concomitant]
     Dosage: 20 MG, QD
     Route: 048
     Dates: start: 20130214, end: 20130214
  67. LASIX [Concomitant]
     Dosage: 20 MG, QD
     Route: 048
     Dates: start: 20130216, end: 20130227
  68. ALLELOCK [Concomitant]
     Dosage: 10 MG, QD
     Route: 048
     Dates: start: 20121212, end: 20121217
  69. ALLELOCK [Concomitant]
     Dosage: 10 MG, QD
     Route: 048
     Dates: start: 20130214, end: 20130227
  70. TALION [Concomitant]
     Dosage: 10 MG, QD
     Route: 048
     Dates: start: 20121212, end: 20121217
  71. DERMOVATE [Concomitant]
     Dosage: 40 G, QD
     Route: 061
     Dates: start: 20121212, end: 20121212
  72. DERMOVATE [Concomitant]
     Dosage: 50 G, QD
     Route: 061
     Dates: start: 20130214, end: 20130214
  73. DERMOVATE [Concomitant]
     Dosage: 50 G, QD
     Route: 061
     Dates: start: 20130221, end: 20130221
  74. KOTARO SHISHIHAKUHITO EXTRACT FINE GRANULES (SHISHIHAKUHITO) [Concomitant]
     Dosage: 6.0 G, QD
     Route: 048
     Dates: start: 20121212, end: 20121217
  75. CELESTAMINE [Concomitant]
     Dosage: 4 DF, QD
     Route: 048
     Dates: start: 20121212, end: 20121217
  76. GASTER D [Concomitant]
     Dosage: 40 MG, QD
     Route: 048
     Dates: start: 20121212, end: 20121217
  77. METHADERM [Concomitant]
     Dosage: 50 G, QD
     Route: 061
     Dates: start: 20121212, end: 20121212
  78. PL [Concomitant]
     Dosage: 3 G, QD
     Route: 048
     Dates: start: 20121213, end: 20121217
  79. PL [Concomitant]
     Dosage: 3 G, QD
     Route: 048
     Dates: start: 20130226, end: 20130303
  80. ISODINE [Concomitant]
     Dosage: 30 ML, QD
     Route: 049
     Dates: start: 20121213, end: 20121213
  81. ISODINE [Concomitant]
     Dosage: 30 ML, QD
     Route: 049
     Dates: start: 20130214, end: 20130214
  82. ISODINE [Concomitant]
     Dosage: 30 ML, QD
     Route: 049
     Dates: start: 20130220, end: 20130221
  83. HIRUDOID [Concomitant]
     Dosage: 175 G, QD
     Route: 051
     Dates: start: 20121218, end: 20121218
  84. HIRUDOID [Concomitant]
     Dosage: 50 G, QD
     Route: 051
     Dates: start: 20130110, end: 20130110
  85. HIRUDOID [Concomitant]
     Dosage: 50 G, QD
     Route: 051
     Dates: start: 20130220, end: 20130220
  86. HIRUDOID [Concomitant]
     Dosage: 25 G, QD
     Route: 051
     Dates: start: 20130304, end: 20130304
  87. PETROLATUM SALICYLATE [Concomitant]
     Dosage: 40 G, QD
     Route: 061
     Dates: start: 20121218, end: 20121218
  88. WHITE PETROLATUM [Concomitant]
     Dosage: 40 G, QD
     Route: 051
     Dates: start: 20121218, end: 20121218
  89. WHITE PETROLATUM [Concomitant]
     Dosage: 30 G, QD
     Route: 051
     Dates: start: 20130218, end: 20130218
  90. MOHRUS [Concomitant]
     Dosage: 5 PACKS, QD
     Route: 061
     Dates: start: 20130107, end: 20130107
  91. RESTAMIN [Concomitant]
     Dosage: 20 G, QD
     Route: 061
     Dates: start: 20130124, end: 20130124
  92. MIRCERA [Concomitant]
     Dosage: 1 DF, QD
     Route: 058
     Dates: start: 20130124, end: 20130124
  93. MIRCERA [Concomitant]
     Dosage: 1 DF, QD
     Route: 058
     Dates: start: 20130216, end: 20130216
  94. APHTASOLON [Concomitant]
     Dosage: 6 G, QD
     Route: 049
     Dates: start: 20130207, end: 20130207
  95. ANTEBATE [Concomitant]
     Dosage: 5 G, QD
     Route: 061
     Dates: start: 20130214, end: 20130214
  96. ATARAX [Concomitant]
     Dosage: 20 MG, QD
     Route: 048
     Dates: start: 20130214, end: 20130227
  97. SOLITA-T 3G [Concomitant]
     Dosage: 900 ML, QD
     Route: 041
     Dates: start: 20130214, end: 20130219
  98. SOLITA-T 3G [Concomitant]
     Dosage: 600 ML, QD
     Route: 041
     Dates: start: 20130220, end: 20130221
  99. SOLITA-T 3G [Concomitant]
     Dosage: 200 ML, QD
     Route: 041
     Dates: start: 20130222, end: 20130223
  100. DECADRON PHOSPHATE [Concomitant]
     Dosage: 6.6 MG, QD
     Route: 041
     Dates: start: 20130214, end: 20130219
  101. DECADRON PHOSPHATE [Concomitant]
     Dosage: 2, 1.65MG AMP,QD
     Route: 041
     Dates: start: 20130214, end: 20130215
  102. DECADRON PHOSPHATE [Concomitant]
     Dosage: 1, 1.65MG AMP, QD
     Route: 041
     Dates: start: 20130216, end: 20130218
  103. DECADRON PHOSPHATE [Concomitant]
     Dosage: 2, 1.65MG AMP, QD
     Route: 041
     Dates: start: 20130220, end: 20130221
  104. DECADRON PHOSPHATE [Concomitant]
     Dosage: 1, 1.65MG AMP, QD
     Route: 041
     Dates: start: 20130222, end: 20130223
  105. ADONA [Concomitant]
     Dosage: 100 MG, QD
     Route: 041
     Dates: start: 20130214, end: 20130221
  106. TRANSAMIN [Concomitant]
     Dosage: 1 AMP, QD
     Route: 041
     Dates: start: 20130214, end: 20130221
  107. ITRIZOLE [Concomitant]
     Dosage: 20 ML, QD
     Route: 048
     Dates: start: 20130216, end: 20130301
  108. GENTACIN [Concomitant]
     Dosage: 10 G, QD
     Route: 061
     Dates: start: 20130221, end: 20130221
  109. ALDACTONE A [Concomitant]
     Dosage: 25 MG, QD
     Route: 048
     Dates: start: 20121203, end: 20121205
  110. ALDACTONE A [Concomitant]
     Dosage: 50 MG, QD
     Route: 048
     Dates: start: 20121206, end: 20121206
  111. ALDACTONE A [Concomitant]
     Dosage: 25 MG, QD
     Route: 048
     Dates: start: 20121207, end: 20121211
  112. ALDACTONE A [Concomitant]
     Dosage: 25 MG, QD
     Route: 048
     Dates: start: 20130110, end: 20130214
  113. ALDACTONE A [Concomitant]
     Dosage: 25 MG, QD
     Route: 048
     Dates: start: 20130216, end: 20130227

REACTIONS (4)
  - Drug eruption [Recovered/Resolved]
  - Oedema peripheral [Recovered/Resolved]
  - Drug eruption [Recovered/Resolved]
  - Drug eruption [Recovered/Resolved]
